FAERS Safety Report 4640990-5 (Version None)
Quarter: 2005Q2

REPORT INFORMATION
  Report Type: 
  Country: None (occurrence: None)
  Receive Date: 20050421
  Receipt Date: 20050407
  Transmission Date: 20051028
  Serious: Yes (Other)
  Sender: FDA-Public Use
  Company Number: CA-BOEHRINGER INGELHEIM PHARMACEUTICALS, INC.-2005-DE-01339GD

PATIENT

DRUGS (10)
  1. MORPHINE [Suspect]
     Indication: POSTOPERATIVE ANALGESIA
     Dosage: PATIENT-CONTROLLED ANALGESIA WITH BOLUS OF 1 MG WITH A LOCKOUT INTERVAL OF 5 MIN
  2. TRAMADOL HCL [Suspect]
     Indication: POSTOPERATIVE ANALGESIA
     Dosage: BOLUSES
  3. FENTANYL [Suspect]
     Indication: ANAESTHESIA
     Dosage: 5 MCG/KG, ADDITIONAL FOR UP TO 15 MCG/KG
  4. ETOMIDATE [Concomitant]
     Indication: ANAESTHESIA
     Dosage: 0.2 - 0.3 MG/KG
  5. PANCURONIUM [Concomitant]
     Indication: HYPOTONIA
  6. ISOFLURANE [Concomitant]
     Indication: ANAESTHESIA
     Dosage: 1 - 2% IN OXYGEN ENRICHED AIR
  7. TRANEXAMIC ACID [Concomitant]
     Route: 042
  8. HEPARIN [Concomitant]
     Indication: ANTICOAGULANT THERAPY
  9. PROTAMINE [Concomitant]
  10. PROPOFOL [Concomitant]
     Indication: ANAESTHESIA

REACTIONS (1)
  - DRUG EFFECT DECREASED [None]
